FAERS Safety Report 9547296 (Version 2)
Quarter: 2014Q4

REPORT INFORMATION
  Report Type: Spontaneous
  Country: US (occurrence: None)
  Receive Date: 20130606
  Receipt Date: 20141205
  Transmission Date: 20150529
  Serious: No
  Sender: FDA-Public Use
  Company Number: 163-POMAL-13044425

PATIENT
  Age: 64 Year
  Sex: Male

DRUGS (1)
  1. POMALYST [Suspect]
     Active Substance: POMALIDOMIDE
     Indication: PLASMA CELL MYELOMA
     Dosage: 4 MG, 1 IN 1 D, PO
     Route: 048
     Dates: start: 201303

REACTIONS (2)
  - Neuropathy peripheral [None]
  - Hearing impaired [None]

NARRATIVE: CASE EVENT DATE: 2013
